FAERS Safety Report 4408738-7 (Version None)
Quarter: 2004Q3

REPORT INFORMATION
  Report Type: 
  Country: None (occurrence: None)
  Receive Date: 20040727
  Receipt Date: 20040721
  Transmission Date: 20050211
  Serious: Yes (Other)
  Sender: FDA-Public Use
  Company Number: PHNU2004DE02612

PATIENT
  Sex: Male

DRUGS (8)
  1. TRILEPTAL [Suspect]
     Indication: EPILEPSY
     Dosage: 900MG/D (DOSAGE INCR. 150-900)
     Route: 048
     Dates: start: 20040501
  2. VESDIL 2.5 PLUS [Suspect]
     Dosage: 1 DF, BID
     Dates: end: 20040720
  3. CIPRAMIL [Concomitant]
     Dosage: 30 MG/DT
     Dates: start: 20020101, end: 20040101
  4. CIPRAMIL [Concomitant]
     Dosage: 10 MG/D
     Dates: start: 20040101, end: 20040101
  5. ISCOVER [Concomitant]
     Dosage: 75 MG/D
  6. PROVAS ^SCHWARZ^ [Concomitant]
     Dosage: 40 MG/D
  7. PIRACETAM [Concomitant]
  8. PRAVASIN [Concomitant]

REACTIONS (7)
  - ASTHENIA [None]
  - CONFUSIONAL STATE [None]
  - DISORIENTATION [None]
  - FALL [None]
  - RHINITIS [None]
  - RHINORRHOEA [None]
  - SNEEZING [None]
